FAERS Safety Report 6840259-4 (Version None)
Quarter: 2010Q3

REPORT INFORMATION
  Report Type: 
  Country: None (occurrence: None)
  Receive Date: 20100714
  Receipt Date: 20100709
  Transmission Date: 20110219
  Serious: Yes (Death, Life-Threatening, Hospitalization, Other)
  Sender: FDA-Public Use
  Company Number: PHHO2010ES09590

PATIENT
  Age: 65 Year
  Sex: Female

DRUGS (1)
  1. EXJADE [Suspect]
     Indication: BLOOD IRON INCREASED
     Dosage: 1500 MG 7 DAILY AND 1000 MG EVERY OTHER DAY

REACTIONS (5)
  - CEREBRAL HAEMORRHAGE [None]
  - DIABETIC COMA [None]
  - HEPATIC ENCEPHALOPATHY [None]
  - HEPATIC FAILURE [None]
  - RENAL FAILURE [None]
